FAERS Safety Report 12044770 (Version 1)
Quarter: 2016Q1

REPORT INFORMATION
  Report Type: Report from Study
  Country: US (occurrence: US)
  Receive Date: 20160208
  Receipt Date: 20160208
  Transmission Date: 20160526
  Serious: No
  Sender: FDA-Public Use
  Company Number: US-ABBVIE-15P-163-1351468-00

PATIENT
  Age: 56 Year
  Sex: Female

DRUGS (2)
  1. HUMIRA [Suspect]
     Active Substance: ADALIMUMAB
     Route: 065
     Dates: start: 2015
  2. HUMIRA [Suspect]
     Active Substance: ADALIMUMAB
     Indication: RHEUMATOID ARTHRITIS
     Route: 065
     Dates: end: 2014

REACTIONS (11)
  - Axillary pain [Unknown]
  - Feeling abnormal [Unknown]
  - Accidental overdose [Unknown]
  - Ligament pain [Unknown]
  - Fatigue [Unknown]
  - Drug ineffective [Recovering/Resolving]
  - Poor quality drug administered [Unknown]
  - Disability [Unknown]
  - Rheumatoid arthritis [Unknown]
  - Pain in extremity [Unknown]
  - Tendon pain [Unknown]

NARRATIVE: CASE EVENT DATE: 201502
